FAERS Safety Report 19259491 (Version 2)
Quarter: 2022Q1

REPORT INFORMATION
  Report Type: Spontaneous
  Country: US (occurrence: US)
  Receive Date: 20210514
  Receipt Date: 20220127
  Transmission Date: 20220423
  Serious: No
  Sender: FDA-Public Use
  Company Number: US-PFIZER INC-2020406171

PATIENT
  Age: 71 Year
  Sex: Female

DRUGS (6)
  1. SUTENT [Suspect]
     Active Substance: SUNITINIB MALATE
     Indication: Neoplasm skin
     Dosage: 12.5 MG, 1X/DAY
     Route: 048
  2. SUTENT [Suspect]
     Active Substance: SUNITINIB MALATE
     Indication: Extraskeletal myxoid chondrosarcoma
     Dosage: 25 MG
  3. SUTENT [Suspect]
     Active Substance: SUNITINIB MALATE
     Indication: Metastases to pelvis
     Dosage: 12.5 MG
  4. SUTENT [Suspect]
     Active Substance: SUNITINIB MALATE
     Indication: Bone cancer
     Dosage: 25 MG, 1X/DAY (ONCE DAILY)
     Route: 048
  5. SUTENT [Suspect]
     Active Substance: SUNITINIB MALATE
     Dosage: 25 MG, ALTERNATE DAY (ALTERNATE BETWEEN TAKING 25MG AND 37.5MG (25MG PLYS 12.5MG))
     Route: 048
  6. SUTENT [Suspect]
     Active Substance: SUNITINIB MALATE
     Dosage: 37.5 MG, ALTERNATE DAY (ALTERNATE BETWEEN TAKING 25MG AND 37.5MG (25MG PLYS 12.5MG))
     Route: 048

REACTIONS (2)
  - Memory impairment [Unknown]
  - Off label use [Unknown]
